APPROVED DRUG PRODUCT: DESMOPRESSIN ACETATE
Active Ingredient: DESMOPRESSIN ACETATE
Strength: 0.01%
Dosage Form/Route: SOLUTION;NASAL
Application: A077212 | Product #001
Applicant: SUN PHARMACEUTICAL INDUSTRIES LTD
Approved: Apr 12, 2012 | RLD: No | RS: No | Type: DISCN